FAERS Safety Report 9848560 (Version 1)
Quarter: 2013Q4

REPORT INFORMATION
  Report Type: Spontaneous
  Country: US (occurrence: None)
  Receive Date: 20131223
  Receipt Date: 20131223
  Transmission Date: 20140711
  Serious: No
  Sender: FDA-Public Use
  Company Number: 220920LEO

PATIENT
  Age: 61 Year
  Sex: Female

DRUGS (3)
  1. PICATO (0.015 %) [Suspect]
     Indication: ACTINIC KERATOSIS
     Route: 061
     Dates: start: 20130309
  2. CALCIUM [Concomitant]
  3. MVI [Concomitant]

REACTIONS (4)
  - Application site erythema [None]
  - Application site pain [None]
  - Inappropriate schedule of drug administration [None]
  - Overdose [None]
